FAERS Safety Report 6700186-X (Version None)
Quarter: 2010Q2

REPORT INFORMATION
  Report Type: 
  Country: None (occurrence: None)
  Receive Date: 20100428
  Receipt Date: 20100421
  Transmission Date: 20101027
  Serious: Yes (Other)
  Sender: FDA-Public Use
  Company Number: JP-BAYER-201011980BYL

PATIENT
  Sex: Male

DRUGS (3)
  1. ASPIRIN [Suspect]
     Indication: AORTIC VALVE INCOMPETENCE
     Dosage: TOTAL DAILY DOSE: 100 MG  UNIT DOSE: 100 MG
     Route: 048
  2. WARFARIN POTASSIUM [Suspect]
     Indication: ATRIAL FIBRILLATION
     Route: 048
  3. HEPARIN CALCIUM [Concomitant]
     Route: 058

REACTIONS (2)
  - MELAENA [None]
  - SMALL INTESTINE ULCER [None]
